FAERS Safety Report 6195050-1 (Version None)
Quarter: 2009Q2

REPORT INFORMATION
  Report Type: 
  Country: None (occurrence: None)
  Receive Date: 20090519
  Receipt Date: 20090505
  Transmission Date: 20091009
  Serious: Yes (Hospitalization)
  Sender: FDA-Public Use
  Company Number: US-ALEXION-A200900376

PATIENT
  Sex: Female

DRUGS (5)
  1. SOLIRIS [Suspect]
     Indication: PAROXYSMAL NOCTURNAL HAEMOGLOBINURIA
     Dosage: 600 MG, UNK
     Route: 042
     Dates: start: 20070628
  2. SOLIRIS [Suspect]
     Dosage: 900 MG, Q2W
     Route: 042
  3. MOXIFLOXACIN HCL [Concomitant]
  4. PHENERGAN HCL [Concomitant]
  5. PERCOCET [Concomitant]
     Dosage: UNK

REACTIONS (4)
  - CARDIOMEGALY [None]
  - HAEMOLYSIS [None]
  - PULMONARY HYPERTENSION [None]
  - SINUSITIS [None]
